FAERS Safety Report 18508257 (Version 1)
Quarter: 2020Q4

REPORT INFORMATION
  Report Type: Spontaneous
  Country: CA (occurrence: CA)
  Receive Date: 20201116
  Receipt Date: 20201116
  Transmission Date: 20210114
  Serious: Yes (Hospitalization)
  Sender: FDA-Public Use
  Company Number: CA-ACELLA PHARMACEUTICALS, LLC-2095960

PATIENT
  Age: 75 Year
  Sex: Female
  Weight: 70 kg

DRUGS (16)
  1. MULTIVITAMIN [Concomitant]
     Active Substance: VITAMINS
  2. PREGABALIN. [Suspect]
     Active Substance: PREGABALIN
  3. LATANOPROST DROPS [Concomitant]
     Active Substance: LATANOPROST
  4. ZOPICLONE [Concomitant]
     Active Substance: ZOPICLONE
  5. CALCIUM CARBONATE. [Concomitant]
     Active Substance: CALCIUM CARBONATE
  6. VITAMIN B6 [Concomitant]
     Active Substance: PYRIDOXINE HYDROCHLORIDE
  7. ACETAMINOPHEN. [Concomitant]
     Active Substance: ACETAMINOPHEN
  8. NAPROXEN. [Suspect]
     Active Substance: NAPROXEN
  9. GABAPENTIN. [Suspect]
     Active Substance: GABAPENTIN
     Indication: ARTHRALGIA
  10. TELMISARTAN. [Concomitant]
     Active Substance: TELMISARTAN
  11. IPRATROPIUM NASAL SPRAY [Concomitant]
     Active Substance: IPRATROPIUM
  12. ATORVASTATIN [Concomitant]
     Active Substance: ATORVASTATIN
  13. ESTRADIOL. [Concomitant]
     Active Substance: ESTRADIOL
  14. CLONAZEPAM. [Concomitant]
     Active Substance: CLONAZEPAM
  15. VITAMIN 03 [Concomitant]
  16. BRINZOLAMIDE-TIMOLOL DROPS [Suspect]
     Active Substance: BRINZOLAMIDE\TIMOLOL

REACTIONS (1)
  - Toxic epidermal necrolysis [Recovered/Resolved]
